FAERS Safety Report 17519555 (Version 1)
Quarter: 2020Q1

REPORT INFORMATION
  Report Type: Spontaneous
  Country: GB (occurrence: GB)
  Receive Date: 20200310
  Receipt Date: 20200310
  Transmission Date: 20200409
  Serious: Yes (Life-Threatening)
  Sender: FDA-Public Use
  Company Number: GB-TEVA-2020-GB-1195803

PATIENT
  Age: 21 Year
  Sex: Female
  Weight: 51.7 kg

DRUGS (7)
  1. ONDANSETRON [Concomitant]
     Active Substance: ONDANSETRON
  2. PREDNISOLONE. [Concomitant]
     Active Substance: PREDNISOLONE
     Route: 065
  3. DOXORUBICIN [Concomitant]
     Active Substance: DOXORUBICIN
  4. ETOPOSIDE. [Suspect]
     Active Substance: ETOPOSIDE
     Indication: HODGKIN^S DISEASE STAGE IV
     Dosage: 15 ML
     Route: 042
     Dates: start: 20200106
  5. CYCLOPHOSPHAMIDE. [Concomitant]
     Active Substance: CYCLOPHOSPHAMIDE
  6. MESNA. [Concomitant]
     Active Substance: MESNA
  7. APREPITANT. [Concomitant]
     Active Substance: APREPITANT

REACTIONS (5)
  - Muscle rigidity [Recovered/Resolved]
  - Chest pain [Recovered/Resolved]
  - Unresponsive to stimuli [Recovered/Resolved]
  - Extrapyramidal disorder [Recovered/Resolved]
  - Cyanosis [Recovered/Resolved]

NARRATIVE: CASE EVENT DATE: 20200106
